FAERS Safety Report 16199057 (Version 1)
Quarter: 2019Q2

REPORT INFORMATION
  Report Type: Report from Study
  Country: HU (occurrence: HU)
  Receive Date: 20190415
  Receipt Date: 20190415
  Transmission Date: 20190711
  Serious: Yes (Other)
  Sender: FDA-Public Use
  Company Number: HU-PFIZER INC-2019154875

PATIENT
  Age: 33 Year
  Sex: Male
  Weight: 70 kg

DRUGS (2)
  1. ADVIL ULTRA [IBUPROFEN] [Suspect]
     Active Substance: IBUPROFEN
     Indication: DIZZINESS
     Dosage: UNK
     Route: 065
     Dates: start: 20170401
  2. GILENYA [Suspect]
     Active Substance: FINGOLIMOD HYDROCHLORIDE
     Indication: MULTIPLE SCLEROSIS
     Dosage: 0.5 MG, QD
     Route: 048
     Dates: start: 20160712

REACTIONS (5)
  - Dizziness [Unknown]
  - Catarrh [Recovered/Resolved]
  - Alanine aminotransferase increased [Unknown]
  - Nasopharyngitis [Unknown]
  - Lymphocyte count decreased [Unknown]

NARRATIVE: CASE EVENT DATE: 20161024
